FAERS Safety Report 14897650 (Version 3)
Quarter: 2018Q4

REPORT INFORMATION
  Report Type: Spontaneous
  Country: US (occurrence: US)
  Receive Date: 20180515
  Receipt Date: 20181210
  Transmission Date: 20190204
  Serious: Yes (Other)
  Sender: FDA-Public Use
  Company Number: US-ASTRAZENECA-2018SE61669

PATIENT
  Age: 21146 Day
  Sex: Male
  Weight: 80.7 kg

DRUGS (78)
  1. NEXIUM [Suspect]
     Active Substance: ESOMEPRAZOLE MAGNESIUM
     Indication: GASTROOESOPHAGEAL REFLUX DISEASE
     Route: 048
     Dates: start: 2006, end: 2017
  2. PROGRAF [Concomitant]
     Active Substance: TACROLIMUS\TACROLIMUS ANHYDROUS
     Indication: TRANSPLANT REJECTION
     Dates: start: 200712, end: 201707
  3. MAGNESIUM [Concomitant]
     Active Substance: MAGNESIUM
     Indication: PROPHYLAXIS
     Dates: start: 200712, end: 200812
  4. PERI COLACE [Concomitant]
     Indication: CONSTIPATION
  5. FERROUS GLUCONATE [Concomitant]
     Active Substance: FERROUS GLUCONATE
  6. AMOXICILLIN. [Concomitant]
     Active Substance: AMOXICILLIN
     Route: 065
     Dates: start: 200809, end: 200810
  7. CALCITRIOL. [Concomitant]
     Active Substance: CALCITRIOL
     Dates: start: 201002, end: 201006
  8. SODIUM BICARBONATE. [Concomitant]
     Active Substance: SODIUM BICARBONATE
     Dates: start: 201012, end: 201106
  9. PROTONIX [Suspect]
     Active Substance: PANTOPRAZOLE SODIUM
     Indication: GASTROOESOPHAGEAL REFLUX DISEASE
     Dosage: GENERIC (PANTOPRAZOLE)
     Route: 065
     Dates: start: 2008
  10. CALCIUM [Concomitant]
     Active Substance: CALCIUM
     Indication: PROPHYLAXIS
  11. VITAMIN C [Concomitant]
     Active Substance: ASCORBIC ACID
  12. METOPROLOL. [Concomitant]
     Active Substance: METOPROLOL
  13. BUMETANIDE. [Concomitant]
     Active Substance: BUMETANIDE
     Route: 065
     Dates: start: 200908, end: 201007
  14. AMIODARONE [Concomitant]
     Active Substance: AMIODARONE
     Dates: start: 201304
  15. NYSTATIN. [Concomitant]
     Active Substance: NYSTATIN
     Dates: start: 200712, end: 200809
  16. WARFARIN [Concomitant]
     Active Substance: WARFARIN
     Dates: start: 201608
  17. URSO [Concomitant]
     Active Substance: URSODIOL
     Indication: GALLBLADDER DISORDER
  18. ACTONEL [Concomitant]
     Active Substance: RISEDRONATE SODIUM
     Route: 065
     Dates: start: 200712, end: 200907
  19. LEVAQUIN [Concomitant]
     Active Substance: LEVOFLOXACIN
     Route: 048
     Dates: start: 200712, end: 201001
  20. LISINOPRIL. [Concomitant]
     Active Substance: LISINOPRIL
     Dates: start: 200611, end: 200710
  21. CLOPIDOGREL [Concomitant]
     Active Substance: CLOPIDOGREL BISULFATE
  22. KLOR- CON [Concomitant]
     Dates: start: 201101, end: 201106
  23. METOLAZONE. [Concomitant]
     Active Substance: METOLAZONE
     Indication: PROPHYLAXIS
     Dates: start: 200908, end: 201007
  24. NEXIUM [Suspect]
     Active Substance: ESOMEPRAZOLE MAGNESIUM
     Indication: GASTROOESOPHAGEAL REFLUX DISEASE
     Dosage: GENERIC (ESOMEPRAZOLE)
     Route: 065
     Dates: start: 2015, end: 2017
  25. ACYCLOVIR. [Concomitant]
     Active Substance: ACYCLOVIR
     Route: 065
     Dates: start: 200712, end: 200804
  26. ASCENSIA [Concomitant]
  27. DOXAZOSIN MESILATE [Concomitant]
     Active Substance: DOXAZOSIN MESYLATE
     Dates: start: 200802, end: 201006
  28. CLONIDINE. [Concomitant]
     Active Substance: CLONIDINE
  29. BRILINTA [Concomitant]
     Active Substance: TICAGRELOR
     Route: 065
     Dates: start: 201608, end: 201007
  30. MYCOPHENOLATE MOFETIL. [Concomitant]
     Active Substance: MYCOPHENOLATE MOFETIL
     Indication: PROPHYLAXIS
     Dates: start: 200908, end: 201007
  31. NITROGLYCERIN. [Concomitant]
     Active Substance: NITROGLYCERIN
     Dates: start: 201608
  32. OMNICEF [Concomitant]
     Active Substance: CEFDINIR
     Dates: start: 200701
  33. NEXIUM [Suspect]
     Active Substance: ESOMEPRAZOLE MAGNESIUM
     Indication: GASTROOESOPHAGEAL REFLUX DISEASE
     Route: 048
     Dates: start: 20170822
  34. AMLODIPINE BESYLATE. [Concomitant]
     Active Substance: AMLODIPINE BESYLATE
  35. CLONIDINE. [Concomitant]
     Active Substance: CLONIDINE
     Dates: start: 201012, end: 201203
  36. TRAMADOL. [Concomitant]
     Active Substance: TRAMADOL
  37. PROPRANOLOL [Concomitant]
     Active Substance: PROPRANOLOL HYDROCHLORIDE
     Dates: start: 200611, end: 200710
  38. LEVOTHYROXINE. [Concomitant]
     Active Substance: LEVOTHYROXINE
     Route: 048
     Dates: start: 201208
  39. TACROLIMUS. [Concomitant]
     Active Substance: TACROLIMUS
     Dates: start: 201107
  40. OFLOXACIN. [Concomitant]
     Active Substance: OFLOXACIN
     Dates: start: 201202
  41. NEXIUM [Suspect]
     Active Substance: ESOMEPRAZOLE MAGNESIUM
     Indication: GASTROOESOPHAGEAL REFLUX DISEASE
     Dosage: GENERIC (ESOMEPRAZOLE)
     Route: 065
     Dates: start: 2015, end: 2017
  42. PROTONIX [Suspect]
     Active Substance: PANTOPRAZOLE SODIUM
     Indication: GASTROOESOPHAGEAL REFLUX DISEASE
     Route: 065
     Dates: start: 2006, end: 2017
  43. PROTONIX [Suspect]
     Active Substance: PANTOPRAZOLE SODIUM
     Indication: GASTROOESOPHAGEAL REFLUX DISEASE
     Route: 065
     Dates: start: 2007
  44. METOPROLOL. [Concomitant]
     Active Substance: METOPROLOL
  45. HYDROCODONE [Concomitant]
     Active Substance: HYDROCODONE
     Dates: start: 200712, end: 201406
  46. SPIRONOLACTONE. [Concomitant]
     Active Substance: SPIRONOLACTONE
     Dates: start: 200610, end: 200710
  47. FUROSEMIDE. [Concomitant]
     Active Substance: FUROSEMIDE
     Dates: start: 200610, end: 200907
  48. CIPROFLOXACIN. [Concomitant]
     Active Substance: CIPROFLOXACIN
     Route: 065
     Dates: start: 201604, end: 201608
  49. ASPIRIN. [Concomitant]
     Active Substance: ASPIRIN
     Route: 065
     Dates: start: 2016
  50. ELIQUIS [Concomitant]
     Active Substance: APIXABAN
     Dates: start: 2016
  51. FLUDROCORTISONE [Concomitant]
     Active Substance: FLUDROCORTISONE
     Dates: start: 200801, end: 200903
  52. FLURBIPROFEN SODIUM. [Concomitant]
     Active Substance: FLURBIPROFEN SODIUM
     Dates: start: 201202
  53. NITROSTAT [Concomitant]
     Active Substance: NITROGLYCERIN
     Dates: start: 201608
  54. PREDNISONE. [Concomitant]
     Active Substance: PREDNISONE
     Dates: start: 200712
  55. FERROUS GLUCONATE [Concomitant]
     Active Substance: FERROUS GLUCONATE
     Indication: ANAEMIA
     Dates: start: 2017
  56. NOVOLOG [Concomitant]
     Active Substance: INSULIN ASPART
     Indication: DIABETES MELLITUS
  57. LANTUS [Concomitant]
     Active Substance: INSULIN GLARGINE
     Indication: DIABETES MELLITUS
  58. NORVASC [Concomitant]
     Active Substance: AMLODIPINE BESYLATE
  59. NOVOLIN [Concomitant]
     Active Substance: INSULIN HUMAN
  60. OMNICEF [Concomitant]
     Active Substance: CEFDINIR
     Route: 048
  61. URSODIOL. [Concomitant]
     Active Substance: URSODIOL
     Dates: start: 200311, end: 201601
  62. ATORVASTATIN [Concomitant]
     Active Substance: ATORVASTATIN
  63. ATORVASTATIN [Concomitant]
     Active Substance: ATORVASTATIN
     Route: 065
     Dates: start: 201608, end: 200804
  64. LACTULOSE. [Concomitant]
     Active Substance: LACTULOSE
     Route: 048
     Dates: start: 200610, end: 201001
  65. LEVITRA [Concomitant]
     Active Substance: VARDENAFIL HYDROCHLORIDE TRIHYDRATE
     Dates: start: 200811
  66. NOVOLIN [Concomitant]
     Active Substance: INSULIN HUMAN
     Dates: start: 200712, end: 200809
  67. SONATA [Concomitant]
     Active Substance: ZALEPLON
     Dates: start: 200611
  68. VIAGRA [Concomitant]
     Active Substance: SILDENAFIL CITRATE
     Dates: start: 200810
  69. NEXIUM [Suspect]
     Active Substance: ESOMEPRAZOLE MAGNESIUM
     Indication: GASTROOESOPHAGEAL REFLUX DISEASE
     Route: 048
     Dates: start: 2006, end: 2017
  70. NEXIUM [Suspect]
     Active Substance: ESOMEPRAZOLE MAGNESIUM
     Indication: GASTROOESOPHAGEAL REFLUX DISEASE
     Route: 048
     Dates: start: 20170822
  71. AMLODIPINE [Concomitant]
     Active Substance: AMLODIPINE BESYLATE
  72. PREDNISONE. [Concomitant]
     Active Substance: PREDNISONE
     Route: 048
  73. CLOTRIMAZOLE. [Concomitant]
     Active Substance: CLOTRIMAZOLE
     Dates: start: 201107
  74. OYSCO [Concomitant]
  75. SULFAMETHOXAZOLE [Concomitant]
     Active Substance: SULFAMETHOXAZOLE
     Route: 048
     Dates: start: 20080121
  76. HYDROCHLOROTHIAZIDE. [Concomitant]
     Active Substance: HYDROCHLOROTHIAZIDE
     Dates: start: 200802, end: 200911
  77. HYDRALAZINE [Concomitant]
     Active Substance: HYDRALAZINE HYDROCHLORIDE
     Route: 065
     Dates: start: 201012, end: 201109
  78. SODIUM POLYSTYRENE SULFONATE. [Concomitant]
     Active Substance: SODIUM POLYSTYRENE SULFONATE
     Dates: start: 200909, end: 201106

REACTIONS (4)
  - Chronic kidney disease [Not Recovered/Not Resolved]
  - End stage renal disease [Not Recovered/Not Resolved]
  - Acute kidney injury [Not Recovered/Not Resolved]
  - Renal failure [Not Recovered/Not Resolved]

NARRATIVE: CASE EVENT DATE: 20071202
